FAERS Safety Report 8196700-0 (Version None)
Quarter: 2012Q1

REPORT INFORMATION
  Report Type: 
  Country: None (occurrence: None)
  Receive Date: 20120307
  Receipt Date: 20120224
  Transmission Date: 20120608
  Serious: Yes (Death)
  Sender: FDA-Public Use
  Company Number: 2012S1000062

PATIENT
  Age: 1 Day
  Sex: Female
  Weight: 0.98 kg

DRUGS (3)
  1. OXYGEN [Concomitant]
  2. SURVANTA [Concomitant]
  3. INOMAX [Suspect]
     Indication: NEONATAL RESPIRATORY DISTRESS SYNDROME
     Dosage: 20 PPM; CONT; INH
     Route: 055
     Dates: start: 20120223, end: 20120224

REACTIONS (1)
  - INTRAVENTRICULAR HAEMORRHAGE NEONATAL [None]
